FAERS Safety Report 26122977 (Version 1)
Quarter: 2025Q4

REPORT INFORMATION
  Report Type: Spontaneous
  Country: BR (occurrence: BR)
  Receive Date: 20251204
  Receipt Date: 20251204
  Transmission Date: 20260118
  Serious: Yes (Other)
  Sender: PFIZER
  Company Number: BR-PFIZER INC-202500236530

PATIENT
  Age: 67 Year
  Sex: Male
  Weight: 66.6 kg

DRUGS (3)
  1. RUXIENCE [Suspect]
     Active Substance: RITUXIMAB-PVVR
     Indication: Non-Hodgkin^s lymphoma
     Dosage: 700 MG, 1X/DAY
     Route: 042
     Dates: start: 20251104, end: 20251104
  2. ACETAMINOPHEN [Concomitant]
     Active Substance: ACETAMINOPHEN
     Dosage: 750 MG, 1X/DAY
     Route: 048
     Dates: start: 20251104, end: 20251104
  3. DIPHENHYDRAMINE [Concomitant]
     Active Substance: DIPHENHYDRAMINE
     Dosage: 50 MG, 1X/DAY
     Route: 042
     Dates: start: 20251104, end: 20251104

REACTIONS (4)
  - Tremor [Recovered/Resolved]
  - Hypertension [Recovered/Resolved]
  - Creatinine renal clearance decreased [Unknown]
  - Off label use [Unknown]

NARRATIVE: CASE EVENT DATE: 20251104
